FAERS Safety Report 20843932 (Version 1)
Quarter: 2022Q2

REPORT INFORMATION
  Report Type: Report from Study
  Country: GB (occurrence: GB)
  Receive Date: 20220518
  Receipt Date: 20220518
  Transmission Date: 20220721
  Serious: Yes (Other)
  Sender: FDA-Public Use
  Company Number: GB-TAKEDA-SPV1-2009-02625

PATIENT
  Age: 10 Year
  Sex: Male

DRUGS (68)
  1. IDURSULFASE [Suspect]
     Active Substance: IDURSULFASE
     Indication: Mucopolysaccharidosis II
     Dosage: 0.48 MILLIGRAM/KILOGRAM, 1/WEEK
     Route: 042
     Dates: start: 20070508
  2. IDURSULFASE [Suspect]
     Active Substance: IDURSULFASE
     Dosage: 0.48 MILLIGRAM/KILOGRAM, 1/WEEK
     Route: 042
     Dates: start: 20080408, end: 20090109
  3. GENTISONE [Concomitant]
     Indication: Cough
     Dosage: UNK
     Route: 050
     Dates: start: 20071011, end: 20071016
  4. GENTISONE [Concomitant]
     Indication: Ear infection
     Dosage: UNK
     Route: 061
     Dates: start: 20091203
  5. HEPARIN SODIUM [Concomitant]
     Active Substance: HEPARIN SODIUM
     Indication: Anticoagulant therapy
     Dosage: 5 ML, 1X/WEEK
     Dates: start: 20070621
  6. ACETAMINOPHEN [Concomitant]
     Active Substance: ACETAMINOPHEN
     Indication: Premedication
     Dosage: 250 MG, 1X/WEEK
     Route: 048
     Dates: start: 20050105
  7. ACETAMINOPHEN [Concomitant]
     Active Substance: ACETAMINOPHEN
     Indication: Pain
  8. MELATONIN [Concomitant]
     Active Substance: MELATONIN
     Indication: Sleep disorder
     Dosage: 10 MG, 1X/DAY:QD
     Route: 048
     Dates: start: 2006
  9. TRIMEPRAZINE [Concomitant]
     Active Substance: TRIMEPRAZINE
     Indication: Sleep disorder
     Dosage: 6 MG, 1X/DAY:QD
     Route: 048
     Dates: start: 200607
  10. IBUPROFEN [Concomitant]
     Active Substance: IBUPROFEN
     Indication: Analgesic therapy
     Route: 065
  11. IBUPROFEN [Concomitant]
     Active Substance: IBUPROFEN
     Indication: Pain
  12. MOVICOL [Concomitant]
     Active Substance: POLYETHYLENE GLYCOL 3350\POTASSIUM CHLORIDE\SODIUM BICARBONATE\SODIUM CHLORIDE
     Indication: Gastrointestinal disorder
     Route: 050
  13. OLANZAPINE [Concomitant]
     Active Substance: OLANZAPINE
     Indication: Behaviour disorder
     Dosage: UNK
     Route: 050
     Dates: end: 20090602
  14. OLANZAPINE [Concomitant]
     Active Substance: OLANZAPINE
     Dosage: UNK
     Route: 050
     Dates: start: 20110107
  15. CHLORAL HYDRATE [Concomitant]
     Active Substance: CHLORAL HYDRATE
     Indication: Sleep disorder
     Dosage: UNK
     Route: 050
  16. CHLORAL HYDRATE [Concomitant]
     Active Substance: CHLORAL HYDRATE
     Dosage: UNK
     Route: 054
     Dates: start: 20061025, end: 20061025
  17. CHLORAL HYDRATE [Concomitant]
     Active Substance: CHLORAL HYDRATE
     Dosage: UNK
     Route: 048
     Dates: start: 20061029, end: 20061104
  18. OXYGEN [Concomitant]
     Active Substance: OXYGEN
     Indication: Oxygen therapy
     Route: 055
  19. RANITIDINE [Concomitant]
     Active Substance: RANITIDINE
     Indication: Gastrointestinal disorder
     Route: 050
  20. RANITIDINE [Concomitant]
     Active Substance: RANITIDINE
     Dosage: UNK
     Route: 048
     Dates: start: 20070529, end: 20090109
  21. ALBUTEROL [Concomitant]
     Active Substance: ALBUTEROL
     Indication: Respiratory disorder
     Route: 050
  22. CEFTAZIDIME [Concomitant]
     Active Substance: CEFTAZIDIME
     Indication: Tracheal disorder
     Route: 042
  23. MELATONIN [Concomitant]
     Active Substance: MELATONIN
     Indication: Nervous system disorder
     Dosage: UNK
     Route: 048
     Dates: start: 2002, end: 2006
  24. LOPERAMIDE [Concomitant]
     Active Substance: LOPERAMIDE
     Indication: Gastrointestinal disorder
     Dosage: UNK
     Route: 065
     Dates: start: 2003
  25. CIPROFLOXACIN [Concomitant]
     Active Substance: CIPROFLOXACIN
     Indication: Infection prophylaxis
     Dosage: UNK
     Route: 050
     Dates: start: 200309, end: 200309
  26. CIPROFLOXACIN [Concomitant]
     Active Substance: CIPROFLOXACIN
     Dosage: UNK
     Route: 048
     Dates: start: 20070830, end: 20070914
  27. CIPROFLOXACIN [Concomitant]
     Active Substance: CIPROFLOXACIN
     Dosage: UNK
     Route: 048
     Dates: start: 20070918, end: 20070926
  28. CIPROFLOXACIN [Concomitant]
     Active Substance: CIPROFLOXACIN
     Dosage: UNK
     Route: 050
     Dates: start: 20110201
  29. EPINEPHRINE [Concomitant]
     Active Substance: EPINEPHRINE
     Indication: Respiratory disorder
     Dosage: UNK
     Route: 050
     Dates: start: 20030911, end: 20030911
  30. DICLOFENAC [Concomitant]
     Active Substance: DICLOFENAC
     Indication: Pain
     Dosage: UNK
     Route: 054
     Dates: start: 20030911, end: 20030911
  31. EPHEDRINE [Concomitant]
     Active Substance: EPHEDRINE
     Indication: Respiratory disorder
     Dosage: UNK
     Route: 050
     Dates: start: 20030911, end: 20030911
  32. AMOXICILLIN\CLAVULANATE POTASSIUM [Concomitant]
     Active Substance: AMOXICILLIN\CLAVULANATE POTASSIUM
     Indication: Infection prophylaxis
     Dosage: UNK
     Route: 048
     Dates: start: 20030912, end: 20030919
  33. AMOXICILLIN\CLAVULANATE POTASSIUM [Concomitant]
     Active Substance: AMOXICILLIN\CLAVULANATE POTASSIUM
     Indication: Lower respiratory tract infection
     Dosage: UNK
     Route: 048
     Dates: start: 20100720, end: 2010
  34. PREDNISOLONE [Concomitant]
     Active Substance: PREDNISOLONE
     Indication: Pain
     Dosage: UNK
     Route: 048
     Dates: start: 20031107, end: 20031110
  35. PREDNISOLONE [Concomitant]
     Active Substance: PREDNISOLONE
     Indication: Prophylaxis
     Dosage: UNK
     Route: 048
     Dates: start: 20070605, end: 20070710
  36. PREDNISOLONE [Concomitant]
     Active Substance: PREDNISOLONE
     Dosage: UNK
     Route: 048
     Dates: start: 20070717, end: 20070918
  37. PREDNISOLONE [Concomitant]
     Active Substance: PREDNISOLONE
     Dosage: UNK
     Route: 048
     Dates: start: 20070924, end: 20070925
  38. PREDNISOLONE [Concomitant]
     Active Substance: PREDNISOLONE
     Dosage: UNK
     Route: 048
     Dates: start: 20071016, end: 20080115
  39. PREDNISOLONE [Concomitant]
     Active Substance: PREDNISOLONE
     Dosage: UNK
     Route: 048
     Dates: start: 20080122, end: 20080422
  40. PREDNISOLONE [Concomitant]
     Active Substance: PREDNISOLONE
     Dosage: UNK
     Route: 048
     Dates: start: 20080429, end: 20080520
  41. PREDNISOLONE [Concomitant]
     Active Substance: PREDNISOLONE
     Dosage: UNK
     Route: 048
     Dates: start: 20080527, end: 20080826
  42. CILOXAN [Concomitant]
     Active Substance: CIPROFLOXACIN HYDROCHLORIDE
     Indication: Excessive cerumen production
     Dosage: UNK
     Route: 048
     Dates: start: 20040128, end: 20040206
  43. MIDAZOLAM [Concomitant]
     Active Substance: MIDAZOLAM
     Indication: Nervous system disorder
     Dosage: UNK
     Route: 065
     Dates: start: 20041013, end: 20041013
  44. AMOXICILLIN [Concomitant]
     Active Substance: AMOXICILLIN
     Indication: Infection prophylaxis
     Dosage: UNK
     Route: 048
     Dates: start: 20050608, end: 20050618
  45. BACTROBAN [Concomitant]
     Active Substance: MUPIROCIN\MUPIROCIN CALCIUM
     Indication: Infection prophylaxis
     Dosage: UNK
     Route: 065
     Dates: start: 2006, end: 2006
  46. CEFPODOXIME [Concomitant]
     Active Substance: CEFPODOXIME
     Indication: Infection prophylaxis
     Dosage: UNK
     Route: 048
     Dates: start: 200602, end: 200602
  47. CEPHALEXIN [Concomitant]
     Active Substance: CEPHALEXIN
     Indication: Infection prophylaxis
     Dosage: UNK
     Route: 048
     Dates: start: 20060221, end: 20060226
  48. GRISEOFULVIN [Concomitant]
     Active Substance: GRISEOFULVIN
     Indication: Antifungal prophylaxis
     Dosage: UNK
     Route: 048
     Dates: start: 200606, end: 200607
  49. AUGMENTIN [Concomitant]
     Active Substance: AMOXICILLIN\CLAVULANATE POTASSIUM
     Indication: Infection prophylaxis
     Dosage: UNK
     Route: 042
     Dates: start: 200610, end: 2006
  50. AUGMENTIN [Concomitant]
     Active Substance: AMOXICILLIN\CLAVULANATE POTASSIUM
     Indication: Lower respiratory tract infection
     Dosage: UNK
     Route: 050
     Dates: start: 20090123, end: 2009
  51. DEXAMETHASONE [Concomitant]
     Active Substance: DEXAMETHASONE
     Indication: Respiratory disorder
     Dosage: UNK
     Route: 048
     Dates: start: 20061017, end: 20061022
  52. DEXAMETHASONE [Concomitant]
     Active Substance: DEXAMETHASONE
     Dosage: UNK
     Route: 048
     Dates: start: 20061024, end: 20061027
  53. METRONIDAZOLE [Concomitant]
     Active Substance: METRONIDAZOLE
     Indication: Infection prophylaxis
     Dosage: UNK
     Route: 042
     Dates: start: 20061017, end: 200610
  54. METRONIDAZOLE [Concomitant]
     Active Substance: METRONIDAZOLE
     Indication: Lower respiratory tract infection
     Dosage: UNK
     Route: 048
     Dates: start: 20100720, end: 2010
  55. CEFOTAXIME [Concomitant]
     Active Substance: CEFOTAXIME SODIUM
     Indication: Infection prophylaxis
     Dosage: UNK
     Route: 042
     Dates: start: 20061203, end: 20061203
  56. CEFOTAXIME [Concomitant]
     Active Substance: CEFOTAXIME SODIUM
     Dosage: UNK
     Route: 050
     Dates: start: 20090123, end: 2009
  57. TRI-ADCORTYL [Concomitant]
     Indication: Skin disorder
     Dosage: UNK
     Route: 061
     Dates: start: 20070308, end: 2007
  58. TRI-ADCORTYL [Concomitant]
     Indication: Granuloma
  59. EMLA [Concomitant]
     Active Substance: LIDOCAINE\PRILOCAINE
     Indication: Catheterisation venous
     Dosage: UNK
     Route: 061
     Dates: start: 20070505
  60. HYDROXYZINE HYDROCHLORIDE [Concomitant]
     Active Substance: HYDROXYZINE HYDROCHLORIDE
     Indication: Prophylaxis
     Dosage: UNK
     Route: 048
     Dates: start: 20070529, end: 20090109
  61. CHLORPHENIRAMINE [Concomitant]
     Active Substance: CHLORPHENIRAMINE
     Indication: Prophylaxis
     Dosage: UNK
     Route: 048
     Dates: start: 20070605, end: 20090109
  62. AMPICILLIN [Concomitant]
     Active Substance: AMPICILLIN
     Indication: Infection prophylaxis
     Dosage: UNK
     Route: 042
     Dates: start: 20070621, end: 20070621
  63. FLUCLOXACILLIN [Concomitant]
     Active Substance: FLUCLOXACILLIN
     Indication: Infection prophylaxis
     Dosage: UNK
     Route: 042
     Dates: start: 20070621, end: 20070621
  64. HEPARIN SODIUM [Concomitant]
     Active Substance: HEPARIN SODIUM
     Indication: Catheterisation venous
     Dosage: UNK
     Route: 042
     Dates: start: 20070621, end: 201008
  65. SILVER NITRATE [Concomitant]
     Active Substance: SILVER NITRATE
     Indication: Granuloma
     Dosage: UNK
     Route: 061
     Dates: start: 20080708, end: 20080708
  66. RISPERIDONE [Concomitant]
     Active Substance: RISPERIDONE
     Indication: Agitation
     Dosage: UNK
     Route: 048
     Dates: start: 2009, end: 20090603
  67. CLOBAZAM [Concomitant]
     Active Substance: CLOBAZAM
     Indication: Agitation
     Dosage: UNK
     Route: 050
     Dates: start: 2009
  68. CLOBAZAM [Concomitant]
     Active Substance: CLOBAZAM
     Dosage: UNK
     Route: 050
     Dates: start: 20090609

REACTIONS (1)
  - Feeding disorder [Recovered/Resolved]

NARRATIVE: CASE EVENT DATE: 20090116
